FAERS Safety Report 5418306-6 (Version None)
Quarter: 2007Q3

REPORT INFORMATION
  Report Type: 
  Country: None (occurrence: None)
  Receive Date: 20070817
  Receipt Date: 20070809
  Transmission Date: 20080115
  Serious: Yes (Death, Life-Threatening)
  Sender: FDA-Public Use
  Company Number: US-BRISTOL-MYERS SQUIBB COMPANY-13847884

PATIENT
  Age: 40 Year
  Sex: Female

DRUGS (14)
  1. ABATACEPT [Suspect]
     Indication: RHEUMATOID ARTHRITIS
     Dates: start: 20040405, end: 20070628
  2. PREDNISONE TAB [Concomitant]
     Dosage: 2MG ALTERNATING  WITH 2.5 MG EVERY OTHER DAY
  3. CELECOXIB [Concomitant]
  4. VITAMIN CAP [Concomitant]
  5. CALCIUM CHLORIDE [Concomitant]
  6. FOLIC ACID [Concomitant]
  7. DARVOCET [Concomitant]
     Dates: start: 20060121
  8. DECONSAL [Concomitant]
     Dates: start: 20070523
  9. TYLENOL SINUS [Concomitant]
     Dates: start: 20070523
  10. DEXTROMETHORPHAN+GUAIFENESIN+PSEUDOEPHEDRINE [Concomitant]
  11. METHOTREXATE [Concomitant]
  12. SULFASALAZINE [Concomitant]
  13. TRIPHASIL-28 [Concomitant]
  14. VITAMIN D [Concomitant]

REACTIONS (6)
  - ASPERGILLOSIS [None]
  - CHILLS [None]
  - DEATH [None]
  - INFECTION PARASITIC [None]
  - MULTI-ORGAN FAILURE [None]
  - PYREXIA [None]
